FAERS Safety Report 19553923 (Version 1)
Quarter: 2021Q3

REPORT INFORMATION
  Report Type: Spontaneous
  Country: US (occurrence: US)
  Receive Date: 20210715
  Receipt Date: 20210715
  Transmission Date: 20211014
  Serious: Yes (Life-Threatening, Hospitalization, Other)
  Sender: FDA-Public Use
  Company Number: US-GLAXOSMITHKLINE-US2021150987

PATIENT
  Sex: Female

DRUGS (1)
  1. NUCALA [Suspect]
     Active Substance: MEPOLIZUMAB
     Indication: ASTHMA
     Dosage: 100 MG, Z(EVERY 4 WEEKS/28 DAYS)

REACTIONS (4)
  - Product dose omission issue [Unknown]
  - Endotracheal intubation [Recovering/Resolving]
  - Near death experience [Recovering/Resolving]
  - Illness [Not Recovered/Not Resolved]
